FAERS Safety Report 9252562 (Version 1)
Quarter: 2013Q1

REPORT INFORMATION
  Report Type: Spontaneous
  Country: US (occurrence: None)
  Receive Date: 20130305
  Receipt Date: 20130305
  Transmission Date: 20140127
  Serious: Yes (Other)
  Sender: FDA-Public Use
  Company Number: 163-21880-12052191

PATIENT
  Age: 81 Year
  Sex: Female

DRUGS (3)
  1. REVLIMID (LENALIDOMIDE) (5 MILLIGRAM, CAPSULE) [Suspect]
     Dosage: 5 MG, 21 IN 28 D, PO
     Route: 048
     Dates: start: 20110511
  2. VITAMIN D3 (COLECALCIFEROL) (UNKNOWN) [Concomitant]
  3. CALCIUM (CALCIUM) (UNKNOWN) [Concomitant]

REACTIONS (7)
  - Diarrhoea [None]
  - Muscle spasms [None]
  - Fatigue [None]
  - Decreased appetite [None]
  - Weight decreased [None]
  - Memory impairment [None]
  - Stomatitis [None]
